FAERS Safety Report 9006250 (Version 1)
Quarter: 2013Q1

REPORT INFORMATION
  Report Type: Spontaneous
  Country: US (occurrence: US)
  Receive Date: 20130110
  Receipt Date: 20130110
  Transmission Date: 20140127
  Serious: Yes (Other)
  Sender: FDA-Public Use
  Company Number: US-009507513-0907USA03834

PATIENT
  Age: 7 Year
  Sex: Female
  Weight: 19.96 kg

DRUGS (2)
  1. SINGULAIR [Suspect]
     Indication: ASTHMA
     Dosage: 5 MG, QD
     Route: 048
     Dates: start: 20081105, end: 20081224
  2. SINGULAIR [Suspect]
     Indication: MULTIPLE ALLERGIES

REACTIONS (10)
  - Morbid thoughts [Recovering/Resolving]
  - Abnormal behaviour [Recovering/Resolving]
  - Aggression [Recovering/Resolving]
  - Arthralgia [Recovering/Resolving]
  - Crying [Recovering/Resolving]
  - Obsessive-compulsive disorder [Recovering/Resolving]
  - Panic reaction [Recovering/Resolving]
  - Speech disorder [Recovering/Resolving]
  - Suicidal ideation [Recovering/Resolving]
  - Thinking abnormal [Recovering/Resolving]
